FAERS Safety Report 10518901 (Version 1)
Quarter: 2014Q4

REPORT INFORMATION
  Report Type: Report from Study
  Country: US (occurrence: US)
  Receive Date: 20141015
  Receipt Date: 20141015
  Transmission Date: 20150528
  Serious: Yes (Other)
  Sender: FDA-Public Use
  Company Number: US-BAYER-2014-150654

PATIENT
  Sex: Male

DRUGS (2)
  1. STIVARGA [Suspect]
     Active Substance: REGORAFENIB
     Indication: RECTAL CANCER
     Dosage: 2 TABLETS DAILY FOR 21 DAYS OUT OF 28
     Route: 048
     Dates: start: 201405
  2. STIVARGA [Suspect]
     Active Substance: REGORAFENIB
     Indication: RECTAL CANCER
     Dosage: 3 TABLETS DAILY MWF AND 2 TABS ON EVERY OTHER DAY OF THE 21 DAYS OUT OF 28
     Route: 048

REACTIONS (2)
  - Carcinoembryonic antigen increased [Recovered/Resolved]
  - Palmar-plantar erythrodysaesthesia syndrome [Recovered/Resolved]
